FAERS Safety Report 18335051 (Version 13)
Quarter: 2023Q2

REPORT INFORMATION
  Report Type: Report from Study
  Country: CA (occurrence: CA)
  Receive Date: 20201001
  Receipt Date: 20230620
  Transmission Date: 20230721
  Serious: Yes (Other)
  Sender: FDA-Public Use
  Company Number: CA-AKCEA THERAPEUTICS-2020IS001158

PATIENT

DRUGS (8)
  1. TEGSEDI [Suspect]
     Active Substance: INOTERSEN SODIUM
     Indication: Hereditary neuropathic amyloidosis
     Dosage: 284 MG, QW
     Route: 058
     Dates: start: 20190227, end: 202107
  2. TEGSEDI [Suspect]
     Active Substance: INOTERSEN SODIUM
     Indication: Polyneuropathy
  3. GRAVOL [Suspect]
     Active Substance: DIMENHYDRINATE
     Indication: Nausea
     Dosage: UNK, QW
     Route: 065
  4. GREEN TEA LEAF [Concomitant]
     Active Substance: GREEN TEA LEAF
     Indication: Product used for unknown indication
     Dosage: 400 MILLIGRAM, QW
     Route: 048
  5. GREEN TEA LEAF [Concomitant]
     Active Substance: GREEN TEA LEAF
     Dosage: 400 MG DAILY
     Route: 048
     Dates: start: 2018
  6. PRILOSEC [Concomitant]
     Active Substance: OMEPRAZOLE MAGNESIUM
     Indication: Gastrooesophageal reflux disease
     Dosage: 20 MG DAILY
     Route: 065
     Dates: start: 201712
  7. DIFLUNISAL [Concomitant]
     Active Substance: DIFLUNISAL
     Indication: Product used for unknown indication
     Dosage: 250 MG, BID
     Route: 048
     Dates: start: 201906
  8. RETINOL [Concomitant]
     Active Substance: RETINOL
     Indication: Product used for unknown indication
     Dosage: 10 SEC 20 MG I/O DAILY
     Route: 065
     Dates: start: 201902

REACTIONS (26)
  - Nucleated red cells [Recovered/Resolved]
  - Splenomegaly [Recovered/Resolved]
  - Nausea [Recovered/Resolved]
  - Fatigue [Recovering/Resolving]
  - Somnolence [Not Recovered/Not Resolved]
  - Platelet count decreased [Recovered/Resolved]
  - Urticaria [Recovered/Resolved]
  - Vitamin A decreased [Recovered/Resolved]
  - Prealbumin decreased [Recovered/Resolved]
  - Blood creatine phosphokinase increased [Not Recovered/Not Resolved]
  - Haematocrit increased [Recovered/Resolved]
  - Eosinophil count increased [Recovered/Resolved]
  - Renal cyst [Not Recovered/Not Resolved]
  - Blood lactate dehydrogenase increased [Not Recovered/Not Resolved]
  - Blood uric acid increased [Not Recovered/Not Resolved]
  - Chills [Recovered/Resolved]
  - Myalgia [Recovered/Resolved]
  - Arthralgia [Recovered/Resolved]
  - Vomiting [Recovered/Resolved]
  - Nausea [Not Recovered/Not Resolved]
  - Diarrhoea [Not Recovered/Not Resolved]
  - Headache [Unknown]
  - Pain [Unknown]
  - Arthralgia [Recovering/Resolving]
  - Chills [Recovering/Resolving]
  - Vomiting [Recovering/Resolving]

NARRATIVE: CASE EVENT DATE: 20190611
